FAERS Safety Report 7759688-X (Version None)
Quarter: 2011Q3

REPORT INFORMATION
  Report Type: 
  Country: None (occurrence: None)
  Receive Date: 20110919
  Receipt Date: 20110907
  Transmission Date: 20111222
  Serious: Yes (Other)
  Sender: FDA-Public Use
  Company Number: KR-JNJFOC-20110904926

PATIENT
  Age: 14 Year
  Sex: Male

DRUGS (8)
  1. CONCERTA [Suspect]
     Indication: DISTURBANCE IN ATTENTION
     Route: 048
     Dates: start: 20100430
  2. CONCERTA [Suspect]
     Route: 048
     Dates: start: 20100615, end: 20100701
  3. BUSPIRONE HCL [Concomitant]
     Route: 048
     Dates: start: 20100416
  4. CONCERTA [Suspect]
     Route: 048
     Dates: start: 20100701
  5. BUSPIRONE HCL [Concomitant]
     Route: 048
     Dates: start: 20100615
  6. BUSPIRONE HCL [Concomitant]
     Route: 048
  7. QUETIAPINE [Concomitant]
     Indication: HYPERPROLACTINAEMIA
     Route: 048
     Dates: start: 20100615
  8. QUETIAPINE [Concomitant]
     Route: 048
     Dates: start: 20100430

REACTIONS (3)
  - AGGRESSION [None]
  - FEELING ABNORMAL [None]
  - TIC [None]
